FAERS Safety Report 20205560 (Version 1)
Quarter: 2021Q4

REPORT INFORMATION
  Report Type: Spontaneous
  Country: DE (occurrence: DE)
  Receive Date: 20211220
  Receipt Date: 20211220
  Transmission Date: 20220303
  Serious: Yes (Other)
  Sender: FDA-Public Use
  Company Number: DE-NOVARTISPH-NVSC2021DE286389

PATIENT
  Age: 61 Year
  Sex: Male

DRUGS (1)
  1. TRIAMCINOLONE [Suspect]
     Active Substance: TRIAMCINOLONE
     Indication: Arthropathy
     Dosage: UNK
     Route: 014

REACTIONS (4)
  - Cardiac disorder [Unknown]
  - Palpitations [Unknown]
  - Tachycardia [Unknown]
  - Dizziness [Unknown]
